FAERS Safety Report 9015354 (Version 1)
Quarter: 2013Q1

REPORT INFORMATION
  Report Type: Report from Study
  Country: BR (occurrence: BR)
  Receive Date: 20130116
  Receipt Date: 20130116
  Transmission Date: 20140127
  Serious: Yes (Other)
  Sender: FDA-Public Use
  Company Number: BR-SANOFI-AVENTIS-2013SA001879

PATIENT
  Sex: Male
  Weight: 75 kg

DRUGS (6)
  1. INSULIN GLARGINE [Suspect]
     Indication: DIABETES MELLITUS
     Route: 058
     Dates: start: 2008
  2. OPTIPEN [Concomitant]
     Indication: DEVICE THERAPY
     Dates: start: 2008
  3. HYDROCHLOROTHIAZIDE [Concomitant]
     Indication: BLOOD PRESSURE
     Route: 048
  4. AMLODIPINE [Concomitant]
     Indication: BLOOD PRESSURE
     Route: 048
  5. ENALAPRIL [Concomitant]
     Indication: BLOOD PRESSURE
     Route: 048
  6. HUMALOG [Concomitant]
     Indication: DIABETES MELLITUS

REACTIONS (2)
  - Blindness [Recovering/Resolving]
  - Blindness [Recovering/Resolving]
